FAERS Safety Report 4525413-9 (Version None)
Quarter: 2004Q4

REPORT INFORMATION
  Report Type: 
  Country: None (occurrence: None)
  Receive Date: 20041213
  Receipt Date: 20041202
  Transmission Date: 20050328
  Serious: Yes (Disabling)
  Sender: FDA-Public Use
  Company Number: GB-GLAXOSMITHKLINE-B0359041A

PATIENT
  Age: 44 Year
  Sex: Male

DRUGS (4)
  1. ZYBAN [Suspect]
     Dosage: 150MG UNKNOWN
     Route: 048
     Dates: start: 20041117, end: 20041123
  2. SERTRALINE HCL [Concomitant]
     Indication: ANXIETY
     Dosage: 50MG PER DAY
     Route: 048
     Dates: start: 20000101, end: 20041101
  3. OMEPRAZOLE [Concomitant]
     Dosage: 20MG PER DAY
     Route: 048
     Dates: start: 20040701
  4. AMITRIPTYLINE HCL [Concomitant]
     Dosage: 10MG PER DAY
     Route: 048
     Dates: start: 20041104

REACTIONS (4)
  - AGGRESSION [None]
  - EMOTIONAL DISORDER [None]
  - IRRITABILITY [None]
  - THINKING ABNORMAL [None]
